FAERS Safety Report 17779236 (Version 1)
Quarter: 2020Q2

REPORT INFORMATION
  Report Type: Spontaneous
  Country: ES (occurrence: ES)
  Receive Date: 20200514
  Receipt Date: 20200514
  Transmission Date: 20200714
  Serious: Yes (Other)
  Sender: FDA-Public Use
  Company Number: ES-SUN PHARMACEUTICAL INDUSTRIES LTD-2020RR-247057

PATIENT
  Age: 50 Year
  Sex: Male
  Weight: 105 kg

DRUGS (3)
  1. MSN 30 MG MORFINA [Concomitant]
     Indication: PAIN
     Dosage: UNK
     Route: 065
     Dates: start: 20200206
  2. TRANKIMAZIN RETARD 1 MG [Concomitant]
     Indication: DRUG DETOXIFICATION
     Dosage: UNK
     Route: 065
  3. PARACETAMOL [Suspect]
     Active Substance: ACETAMINOPHEN
     Indication: PYREXIA
     Dosage: 1 GRAM, UNKNOWN
     Route: 048
     Dates: start: 20200302

REACTIONS (2)
  - Visual impairment [Not Recovered/Not Resolved]
  - Migraine [Not Recovered/Not Resolved]

NARRATIVE: CASE EVENT DATE: 20200401
